FAERS Safety Report 7134638-8 (Version None)
Quarter: 2010Q4

REPORT INFORMATION
  Report Type: 
  Country: None (occurrence: None)
  Receive Date: 20101203
  Receipt Date: 20101124
  Transmission Date: 20110411
  Serious: Yes (Other)
  Sender: FDA-Public Use
  Company Number: PHHY2008JP12496

PATIENT
  Age: 52 Year
  Sex: Male
  Weight: 54 kg

DRUGS (10)
  1. CERTICAN [Suspect]
     Dosage: UNK
     Route: 048
     Dates: start: 20070701
  2. NEORAL [Suspect]
     Indication: HEART TRANSPLANT
     Dosage: UNK
     Route: 048
     Dates: start: 19950101, end: 20010101
  3. NEORAL [Suspect]
     Indication: RENAL TRANSPLANT
     Dosage: UNK
     Dates: start: 20010101, end: 20060101
  4. PROGRAF [Suspect]
     Dosage: UNK
     Route: 048
     Dates: start: 20010101, end: 20061201
  5. PROGRAF [Suspect]
     Dosage: UNK
     Route: 048
     Dates: start: 20061201, end: 20070101
  6. PROGRAF [Suspect]
     Dosage: UNK
     Route: 048
     Dates: start: 20070101
  7. AZATHIOPRINE [Concomitant]
     Route: 048
  8. PREDNISOLONE [Concomitant]
     Dosage: UNK
     Route: 048
  9. MYCOPHENOLATE MOFETIL [Concomitant]
     Dosage: 250 MG PER DAY
     Route: 048
  10. MYCOPHENOLATE MOFETIL [Concomitant]
     Dosage: 250 MG
     Route: 048

REACTIONS (4)
  - BLOOD CREATININE INCREASED [None]
  - EPSTEIN-BARR VIRUS ASSOCIATED LYMPHOPROLIFERATIVE DISORDER [None]
  - RENAL FAILURE CHRONIC [None]
  - RENAL IMPAIRMENT [None]
